FAERS Safety Report 17107267 (Version 1)
Quarter: 2019Q4

REPORT INFORMATION
  Report Type: Spontaneous
  Country: FR (occurrence: FR)
  Receive Date: 20191203
  Receipt Date: 20191203
  Transmission Date: 20200122
  Serious: Yes (Hospitalization)
  Sender: FDA-Public Use
  Company Number: FR-MYLANLABS-2019M1116674

PATIENT
  Age: 76 Year
  Sex: Female
  Weight: 67 kg

DRUGS (2)
  1. SALBUTAMOL MYLAN 5 MG/5 ML, SOLUTION POUR PERFUSION [Suspect]
     Active Substance: ALBUTEROL
     Indication: BRONCHOSPASM
     Dosage: UNK
     Route: 042
     Dates: start: 20190606, end: 20190606
  2. PROSTIGMINE 0,5 MG/1 ML, SOLUTION INJECTABLE [Suspect]
     Active Substance: NEOSTIGMINE METHYLSULFATE
     Indication: ANAESTHESIA REVERSAL
     Dosage: UNK
     Route: 042
     Dates: start: 20190606, end: 20190606

REACTIONS (4)
  - Hyperlactacidaemia [Recovered/Resolved]
  - Tachycardia [Recovered/Resolved]
  - Hyperglycaemia [Recovered/Resolved]
  - Bronchospasm [Recovered/Resolved]

NARRATIVE: CASE EVENT DATE: 20190606
